FAERS Safety Report 7391128-5 (Version None)
Quarter: 2011Q2

REPORT INFORMATION
  Report Type: 
  Country: None (occurrence: None)
  Receive Date: 20110404
  Receipt Date: 20110401
  Transmission Date: 20111010
  Serious: Yes (Life-Threatening)
  Sender: FDA-Public Use
  Company Number: FR-B.I. PHARMACEUTICALS,INC./RIDGEFIELD-2011-FF-00334FF

PATIENT
  Sex: Male

DRUGS (10)
  1. MEDIATOR [Suspect]
     Indication: DIABETES MELLITUS
     Dosage: 450 MG
     Route: 048
     Dates: start: 20000101, end: 20090101
  2. PRAVASTATIN [Suspect]
     Dosage: 40 MG
     Route: 048
  3. DIAMOX [Suspect]
     Dosage: 250 MG
     Route: 048
  4. FORADIL [Suspect]
     Dosage: 24 MCG
     Route: 055
  5. EUCREAS [Suspect]
     Dosage: 50 MG/100 MG
     Route: 048
  6. DIFFU-K [Suspect]
     Route: 048
  7. SPIRIVA [Suspect]
     Indication: CHRONIC OBSTRUCTIVE PULMONARY DISEASE
     Dosage: 18 MCG
     Route: 055
  8. PLAVIX [Suspect]
     Dosage: 75 MG
     Route: 048
  9. MIFLASONE [Suspect]
     Dosage: 800 MCG
     Route: 055
  10. IRBESARTAN [Suspect]
     Dosage: 150 MG
     Route: 048

REACTIONS (2)
  - DYSPNOEA EXERTIONAL [None]
  - PULMONARY ARTERIAL HYPERTENSION [None]
